FAERS Safety Report 12500997 (Version 6)
Quarter: 2017Q1

REPORT INFORMATION
  Report Type: Spontaneous
  Country: US (occurrence: US)
  Receive Date: 20160627
  Receipt Date: 20170328
  Transmission Date: 20170428
  Serious: Yes (Hospitalization, Other)
  Sender: FDA-Public Use
  Company Number: US-JNJFOC-20160618067

PATIENT
  Age: 51 Year
  Sex: Male

DRUGS (3)
  1. LEVAQUIN [Suspect]
     Active Substance: LEVOFLOXACIN
     Indication: SEPSIS
     Route: 048
     Dates: start: 200801
  2. LEVAQUIN [Suspect]
     Active Substance: LEVOFLOXACIN
     Indication: SEPSIS
     Route: 048
     Dates: start: 200712
  3. LEVAQUIN [Suspect]
     Active Substance: LEVOFLOXACIN
     Indication: SEPSIS
     Route: 048
     Dates: start: 200710

REACTIONS (9)
  - Musculoskeletal disorder [Unknown]
  - Neuropsychiatric symptoms [Unknown]
  - Neuropathy peripheral [Not Recovered/Not Resolved]
  - Skin disorder [Unknown]
  - Treatment noncompliance [Unknown]
  - Sensory disturbance [Unknown]
  - Aortic aneurysm [Unknown]
  - Aortic valve incompetence [Unknown]
  - Aortic dissection [Unknown]

NARRATIVE: CASE EVENT DATE: 200711
